FAERS Safety Report 23573774 (Version 1)
Quarter: 2024Q1

REPORT INFORMATION
  Report Type: Spontaneous
  Country: AU (occurrence: AU)
  Receive Date: 20240228
  Receipt Date: 20240228
  Transmission Date: 20240410
  Serious: Yes (Other)
  Sender: FDA-Public Use
  Company Number: AU-JNJFOC-20240256694

PATIENT

DRUGS (2)
  1. HALDOL DECANOATE [Suspect]
     Active Substance: HALOPERIDOL DECANOATE
     Indication: Product used for unknown indication
     Route: 065
  2. FENTANYL [Suspect]
     Active Substance: FENTANYL\FENTANYL CITRATE
     Indication: Product used for unknown indication
     Route: 065

REACTIONS (13)
  - Neurodegenerative disorder [Unknown]
  - Substance abuse [Unknown]
  - Renal impairment [Unknown]
  - Drug abuse [Unknown]
  - Extrapyramidal disorder [Unknown]
  - Fall [Unknown]
  - Cognitive disorder [Unknown]
  - Cardiovascular disorder [Unknown]
  - Cerebrovascular disorder [Unknown]
  - Asthenia [Unknown]
  - Constipation [Unknown]
  - Intentional product use issue [Unknown]
  - Pain [Unknown]
